FAERS Safety Report 6139557-1 (Version None)
Quarter: 2009Q2

REPORT INFORMATION
  Report Type: 
  Country: None (occurrence: None)
  Receive Date: 20090401
  Receipt Date: 20090323
  Transmission Date: 20091009
  Serious: Yes (Hospitalization)
  Sender: FDA-Public Use
  Company Number: GB-NOVOPROD-283472

PATIENT
  Sex: Female
  Weight: 72.5 kg

DRUGS (1)
  1. MIXTARD HUMAN 70/30 [Suspect]
     Indication: INSULIN-REQUIRING TYPE 2 DIABETES MELLITUS
     Dosage: 96 IU, QD (72+24)
     Route: 058
     Dates: start: 20031125

REACTIONS (3)
  - EYE PAIN [None]
  - ORTHOSTATIC HYPOTENSION [None]
  - RHINITIS [None]
